FAERS Safety Report 25877027 (Version 1)
Quarter: 2025Q4

REPORT INFORMATION
  Report Type: Spontaneous
  Country: EU (occurrence: EU)
  Receive Date: 20251003
  Receipt Date: 20251003
  Transmission Date: 20260117
  Serious: Yes (Hospitalization, Other)
  Sender: AUROBINDO
  Company Number: EU-BIOGARAN-B21001360

PATIENT
  Age: 51 Year
  Sex: Female

DRUGS (6)
  1. MOMETASONE FUROATE [Suspect]
     Active Substance: MOMETASONE FUROATE
     Indication: Nasal obstruction
     Dosage: UNK (2 SPRAY IN EACH NOSTRIL)
     Route: 045
     Dates: start: 20210626, end: 2021
  2. ATARAX [Suspect]
     Active Substance: HYDROXYZINE HYDROCHLORIDE
     Indication: Anxiety
     Dosage: 1 DOSAGE FORM, ONCE A DAY (IN THE EVENING)
     Route: 048
     Dates: start: 20210626, end: 2021
  3. PAROXETINE [Suspect]
     Active Substance: PAROXETINE
     Indication: Depression
     Dosage: 2 DOSAGE FORM, ONCE A DAY
     Route: 048
  4. ZOPICLONE [Suspect]
     Active Substance: ZOPICLONE
     Indication: Insomnia
     Dosage: 0.5 DOSAGE FORM, ONCE A DAY (IN THE EVENING)
     Route: 065
     Dates: start: 2020
  5. ALPRAZOLAM [Concomitant]
     Active Substance: ALPRAZOLAM
     Indication: Anxiety
     Dosage: 1 DOSAGE FORM, ONCE A DAY
     Route: 048
     Dates: start: 20200304
  6. ACETAMINOPHEN [Concomitant]
     Active Substance: ACETAMINOPHEN
     Indication: Pain
     Dosage: 3 DOSAGE FORM, ONCE A DAY
     Route: 048

REACTIONS (4)
  - Toxic skin eruption [Recovering/Resolving]
  - Alopecia [Recovering/Resolving]
  - Pulmonary embolism [Recovered/Resolved]
  - Phlebitis [Recovered/Resolved]

NARRATIVE: CASE EVENT DATE: 20210801
